FAERS Safety Report 22329345 (Version 1)
Quarter: 2023Q2

REPORT INFORMATION
  Report Type: Spontaneous
  Country: US (occurrence: US)
  Receive Date: 20230517
  Receipt Date: 20230517
  Transmission Date: 20230722
  Serious: No
  Sender: FDA-Public Use
  Company Number: US-PADAGIS-2023PAD00721

PATIENT

DRUGS (3)
  1. DEXAMETHASONE\TOBRAMYCIN [Suspect]
     Active Substance: DEXAMETHASONE\TOBRAMYCIN
     Indication: Blepharitis
     Dosage: 4 TIMES A DAY IN EACH EYE FOR A WEEK)
     Route: 047
     Dates: start: 20230501, end: 20230508
  2. DEXAMETHASONE\TOBRAMYCIN [Suspect]
     Active Substance: DEXAMETHASONE\TOBRAMYCIN
     Dosage: BID (TWICE A DAY IN EACH EYE)
     Route: 047
     Dates: start: 20230508
  3. PERMETHRIN [Concomitant]
     Active Substance: PERMETHRIN
     Indication: Acarodermatitis
     Dosage: UNK, (APPLY ONCE A WEEK FOR 2 APPLICATIONS)
     Route: 065
     Dates: start: 20230502, end: 20230509

REACTIONS (4)
  - Excessive eye blinking [Not Recovered/Not Resolved]
  - Nausea [Not Recovered/Not Resolved]
  - Headache [Not Recovered/Not Resolved]
  - Product use in unapproved indication [Unknown]

NARRATIVE: CASE EVENT DATE: 20230511
